FAERS Safety Report 6374210-0 (Version None)
Quarter: 2009Q3

REPORT INFORMATION
  Report Type: 
  Country: None (occurrence: None)
  Receive Date: 20090924
  Receipt Date: 20090716
  Transmission Date: 20100115
  Serious: No
  Sender: FDA-Public Use
  Company Number: US-ASTRAZENECA-2009UW19988

PATIENT
  Age: 77 Year
  Sex: Female
  Weight: 92.1 kg

DRUGS (4)
  1. SEROQUEL [Suspect]
     Indication: ANXIETY
     Dosage: 1/2 PILL
     Route: 048
     Dates: start: 20090601
  2. SEROQUEL [Suspect]
     Dosage: 1/4 PILL
     Route: 048
     Dates: start: 20090601
  3. LASIX [Concomitant]
  4. NEBULIZER TREATMENT [Concomitant]

REACTIONS (8)
  - DRUG ADMINISTRATION ERROR [None]
  - DRY MOUTH [None]
  - FEELING ABNORMAL [None]
  - INSOMNIA [None]
  - MEMORY IMPAIRMENT [None]
  - PANIC REACTION [None]
  - SLEEP DISORDER [None]
  - SOMNOLENCE [None]
